FAERS Safety Report 6985813-4 (Version None)
Quarter: 2010Q3

REPORT INFORMATION
  Report Type: 
  Country: None (occurrence: None)
  Receive Date: 20100915
  Receipt Date: 20100902
  Transmission Date: 20110219
  Serious: Yes (Other)
  Sender: FDA-Public Use
  Company Number: PHHY2010CL58247

PATIENT
  Sex: Female

DRUGS (1)
  1. ZOLEDRONIC [Suspect]
     Dosage: 5 MG
     Dates: start: 20091101

REACTIONS (1)
  - JAW DISORDER [None]
